FAERS Safety Report 8460093-1 (Version None)
Quarter: 2012Q2

REPORT INFORMATION
  Report Type: 
  Country: None (occurrence: None)
  Receive Date: 20120622
  Receipt Date: 20120613
  Transmission Date: 20120825
  Serious: Yes (Other)
  Sender: FDA-Public Use
  Company Number: US-ELI_LILLY_AND_COMPANY-US201206005756

PATIENT
  Sex: Female

DRUGS (5)
  1. HUMATROPE [Suspect]
     Indication: GROWTH HORMONE DEFICIENCY
     Dosage: UNK, QD
     Route: 065
  2. HUMATROPE [Suspect]
     Dosage: 1.2 MG, UNKNOWN
     Route: 065
  3. AMBIEN [Concomitant]
  4. HUMATROPE [Suspect]
     Dosage: 0.4 MG, UNKNOWN
     Route: 065
  5. HUMATROPE [Suspect]
     Dosage: UNK

REACTIONS (7)
  - WEIGHT INCREASED [None]
  - NEOPLASM PROGRESSION [None]
  - INCORRECT DOSE ADMINISTERED [None]
  - VISUAL IMPAIRMENT [None]
  - INJECTION SITE HAEMATOMA [None]
  - OPTIC NERVE INJURY [None]
  - DRUG DISPENSING ERROR [None]
